FAERS Safety Report 12326776 (Version 1)
Quarter: 2016Q2

REPORT INFORMATION
  Report Type: Spontaneous
  Country: US (occurrence: US)
  Receive Date: 20160503
  Receipt Date: 20160503
  Transmission Date: 20160815
  Serious: No
  Sender: FDA-Public Use
  Company Number: US-PFIZER INC-2016104774

PATIENT
  Age: 72 Year
  Sex: Male
  Weight: 86 kg

DRUGS (6)
  1. AMPICILLIN SODIUM. [Suspect]
     Active Substance: AMPICILLIN SODIUM
     Indication: OSTEOMYELITIS
     Dosage: UNK
  2. CEFTRIAXONE SODIUM. [Suspect]
     Active Substance: CEFTRIAXONE SODIUM
     Indication: OSTEOMYELITIS
     Dosage: UNK
  3. CEFTRIAXONE SODIUM. [Suspect]
     Active Substance: CEFTRIAXONE SODIUM
     Indication: INTERVERTEBRAL DISCITIS
  4. AMPICILLIN SODIUM. [Suspect]
     Active Substance: AMPICILLIN SODIUM
     Indication: INTERVERTEBRAL DISCITIS
  5. CEFTRIAXONE SODIUM. [Suspect]
     Active Substance: CEFTRIAXONE SODIUM
     Indication: ENTEROCOCCAL INFECTION
  6. AMPICILLIN SODIUM. [Suspect]
     Active Substance: AMPICILLIN SODIUM
     Indication: ENTEROCOCCAL INFECTION

REACTIONS (3)
  - Drug effect incomplete [Unknown]
  - Muscular weakness [Unknown]
  - Product use issue [Unknown]
